FAERS Safety Report 25109446 (Version 1)
Quarter: 2025Q1

REPORT INFORMATION
  Report Type: Spontaneous
  Country: JP (occurrence: JP)
  Receive Date: 20250323
  Receipt Date: 20250323
  Transmission Date: 20250409
  Serious: Yes (Hospitalization)
  Sender: TEVA
  Company Number: JP-TEVA-VS-3311118

PATIENT
  Age: 82 Year
  Sex: Female
  Weight: 48.4 kg

DRUGS (2)
  1. PREDNISOLONE [Suspect]
     Active Substance: PREDNISOLONE
     Indication: Polymyalgia rheumatica
     Dosage: PREDNISOLONE DOSE TAPERED TO 1 MG/DAY; ON 09 MAY
     Route: 048
  2. PREDNISOLONE [Suspect]
     Active Substance: PREDNISOLONE
     Indication: Polymyalgia rheumatica
     Route: 048

REACTIONS (2)
  - Giant cell arteritis [Recovering/Resolving]
  - Withdrawal syndrome [Recovering/Resolving]
